FAERS Safety Report 7280572-2 (Version None)
Quarter: 2011Q1

REPORT INFORMATION
  Report Type: 
  Country: None (occurrence: None)
  Receive Date: 20110208
  Receipt Date: 20110126
  Transmission Date: 20110831
  Serious: Yes (Hospitalization, Other)
  Sender: FDA-Public Use
  Company Number: US-ACTELION-A-NJ2011-43654

PATIENT

DRUGS (12)
  1. TORSEMIDE [Concomitant]
  2. TRACLEER [Suspect]
     Indication: PULMONARY ARTERIAL HYPERTENSION
     Dosage: 62.5 MG, BID
     Route: 048
     Dates: start: 20080923
  3. COLCHICINE [Concomitant]
  4. ATENOLOL [Concomitant]
  5. ASPIRIN [Concomitant]
  6. SYNTHROID [Concomitant]
  7. AMLODIPINE BESYLATE AND VALSARTAN [Concomitant]
  8. REVATIO [Concomitant]
  9. CALCIUM CHANNEL BLOCKERS [Concomitant]
  10. NEXIUM [Concomitant]
  11. PHENOBARBITAL [Concomitant]
  12. ADVAIR [Concomitant]

REACTIONS (2)
  - CEREBROVASCULAR ACCIDENT [None]
  - ATRIAL FIBRILLATION [None]
